FAERS Safety Report 9412775 (Version 1)
Quarter: 2013Q3

REPORT INFORMATION
  Report Type: Report from Study
  Country: BR (occurrence: BR)
  Receive Date: 20130722
  Receipt Date: 20130722
  Transmission Date: 20140515
  Serious: Yes (Other)
  Sender: FDA-Public Use
  Company Number: PHHY2013BR077754

PATIENT
  Age: 62 Year
  Sex: Male
  Weight: 72 kg

DRUGS (8)
  1. DIOVAN [Suspect]
     Indication: BLOOD PRESSURE ABNORMAL
     Dosage: 160 MG, DAILY
     Route: 048
  2. DIOVAN [Suspect]
     Dosage: 80 MG
  3. VASTAREL [Concomitant]
     Indication: CARDIAC DISORDER
     Dosage: 35 MG, UNK
     Dates: start: 2008
  4. LIPTOR [Concomitant]
     Indication: BLOOD CHOLESTEROL ABNORMAL
     Dosage: 20 MG, UNK
     Dates: start: 2008
  5. VALSARTAN [Concomitant]
  6. ERYTHROPOIETIN [Concomitant]
  7. COMBIRON [Concomitant]
  8. PARMIDOLEL [Concomitant]
     Dosage: 6.25 MG, UNK

REACTIONS (3)
  - Cerebrovascular accident [Unknown]
  - Obstruction [Unknown]
  - Infarction [Unknown]
